FAERS Safety Report 7823450-X (Version None)
Quarter: 2011Q4

REPORT INFORMATION
  Report Type: 
  Country: None (occurrence: None)
  Receive Date: 20111019
  Receipt Date: 20111005
  Transmission Date: 20120403
  Serious: Yes (Life-Threatening, Hospitalization)
  Sender: FDA-Public Use
  Company Number: FR-JNJFOC-20110700573

PATIENT
  Age: 22 Year
  Sex: Female
  Weight: 65 kg

DRUGS (3)
  1. TRAMADOL HCL [Suspect]
     Indication: EUPHORIC MOOD
     Dosage: 50MG, 90 TABLETSX 1 DOSE
     Route: 048
  2. TRAMADOL HCL [Suspect]
     Indication: DYSMENORRHOEA
     Dosage: 50MG, 90 TABLETSX 1 DOSE
     Route: 048
  3. KETOCONAZOLE [Interacting]
     Indication: VAGINAL INFECTION
     Route: 065

REACTIONS (17)
  - HYPOTHERMIA [None]
  - SHOCK [None]
  - CARDIAC FAILURE CONGESTIVE [None]
  - RENAL FAILURE [None]
  - DRUG ABUSE [None]
  - LACTIC ACIDOSIS [None]
  - HEPATIC FAILURE [None]
  - CARDIOTOXICITY [None]
  - MYDRIASIS [None]
  - TOXICITY TO VARIOUS AGENTS [None]
  - HYPOGLYCAEMIA [None]
  - DRUG DEPENDENCE [None]
  - COAGULOPATHY [None]
  - CARDIAC ARREST [None]
  - LOSS OF CONSCIOUSNESS [None]
  - INTENTIONAL OVERDOSE [None]
  - DRUG INTERACTION [None]
